FAERS Safety Report 4643145-3 (Version None)
Quarter: 2005Q2

REPORT INFORMATION
  Report Type: 
  Country: None (occurrence: None)
  Receive Date: 20050422
  Receipt Date: 20050216
  Transmission Date: 20051028
  Serious: Yes (Hospitalization, Other)
  Sender: FDA-Public Use
  Company Number: 2005034677

PATIENT
  Sex: Male
  Weight: 89.8122 kg

DRUGS (9)
  1. BEXTRA [Suspect]
     Indication: ARTHRITIS
     Dosage: 20 MG (20 MG, 1 IN 1 D), ORAL
     Route: 048
  2. CELEBREX [Suspect]
     Indication: ILL-DEFINED DISORDER
     Dosage: ORAL
     Route: 048
  3. OMEPRAZOLE [Concomitant]
  4. PIOGLITAZONE HCL [Concomitant]
  5. ALLOPURINOL [Concomitant]
  6. CAPTOPRIL [Concomitant]
  7. LORAZEPAM [Concomitant]
  8. CHLORTALIDONE (CHLORTALIDONE) [Concomitant]
  9. SIMVASTATIN [Concomitant]

REACTIONS (3)
  - INTERVERTEBRAL DISC PROTRUSION [None]
  - LABORATORY TEST ABNORMAL [None]
  - NERVE COMPRESSION [None]
